FAERS Safety Report 7217945-X (Version None)
Quarter: 2011Q1

REPORT INFORMATION
  Report Type: 
  Country: None (occurrence: None)
  Receive Date: 20110110
  Receipt Date: 20110106
  Transmission Date: 20110831
  Serious: Yes (Hospitalization)
  Sender: FDA-Public Use
  Company Number: A0894517A

PATIENT
  Age: 78 Year
  Sex: Female

DRUGS (3)
  1. UNKNOWN [Concomitant]
     Indication: ILL-DEFINED DISORDER
  2. THYROID MEDICATION [Concomitant]
  3. SORIATANE [Suspect]
     Indication: PSORIASIS
     Dosage: 10MG PER DAY
     Route: 048
     Dates: start: 20040101, end: 20101108

REACTIONS (12)
  - BALANCE DISORDER [None]
  - CHEST PAIN [None]
  - HYPOAESTHESIA [None]
  - ERYTHEMA [None]
  - MUSCULAR WEAKNESS [None]
  - PAIN OF SKIN [None]
  - PAIN [None]
  - SKIN CHAPPED [None]
  - INCREASED UPPER AIRWAY SECRETION [None]
  - GAIT DISTURBANCE [None]
  - EYE PAIN [None]
  - PARAESTHESIA [None]
